APPROVED DRUG PRODUCT: KWELL
Active Ingredient: LINDANE
Strength: 1%
Dosage Form/Route: CREAM;TOPICAL
Application: A084218 | Product #001
Applicant: REED AND CARNRICK PHARMACEUTICALS DIV BLOCK DRUG CO INC
Approved: Approved Prior to Jan 1, 1982 | RLD: No | RS: No | Type: DISCN